FAERS Safety Report 6034220-X (Version None)
Quarter: 2009Q1

REPORT INFORMATION
  Report Type: 
  Country: None (occurrence: None)
  Receive Date: 20090112
  Receipt Date: 20090107
  Transmission Date: 20090719
  Serious: Yes (Other)
  Sender: FDA-Public Use
  Company Number: US-ASTRAZENECA-2009UW00513

PATIENT
  Age: 50 Year
  Sex: Male
  Weight: 90.7 kg

DRUGS (4)
  1. CRESTOR [Suspect]
     Indication: BLOOD CHOLESTEROL INCREASED
     Dosage: 5 MG
     Route: 048
     Dates: start: 20080301
  2. WARFARIN [Concomitant]
  3. CARVDILOL [Concomitant]
  4. ZANTAC [Concomitant]
     Dosage: PRN

REACTIONS (4)
  - HEPATIC ENZYME INCREASED [None]
  - JOINT SWELLING [None]
  - LIVER DISORDER [None]
  - MUSCULAR WEAKNESS [None]
